FAERS Safety Report 7744857-5 (Version None)
Quarter: 2011Q3

REPORT INFORMATION
  Report Type: 
  Country: None (occurrence: None)
  Receive Date: 20110912
  Receipt Date: 20110907
  Transmission Date: 20111222
  Serious: Yes (Disabling, Other)
  Sender: FDA-Public Use
  Company Number: DE-MERCK-1108DEU00047

PATIENT
  Age: 54 Year
  Sex: Female
  Weight: 55 kg

DRUGS (10)
  1. SINGULAIR [Suspect]
     Indication: CHRONIC OBSTRUCTIVE PULMONARY DISEASE
     Route: 048
     Dates: start: 20110628, end: 20110903
  2. BUDESONIDE [Concomitant]
     Indication: CHRONIC OBSTRUCTIVE PULMONARY DISEASE
     Route: 065
     Dates: start: 20040101
  3. TIOTROPIUM BROMIDE [Concomitant]
     Indication: ASTHMA
     Route: 065
     Dates: start: 20040101
  4. TIOTROPIUM BROMIDE [Concomitant]
     Indication: CHRONIC OBSTRUCTIVE PULMONARY DISEASE
     Route: 065
     Dates: start: 20040101
  5. ALBUTEROL SULFATE [Concomitant]
     Route: 065
  6. SINGULAIR [Suspect]
     Indication: ASTHMA
     Route: 048
     Dates: start: 20110628, end: 20110903
  7. FORMOTEROL FUMARATE [Concomitant]
     Indication: ASTHMA
     Route: 065
     Dates: start: 20040101
  8. BUDESONIDE [Concomitant]
     Indication: ASTHMA
     Route: 065
     Dates: start: 20040101
  9. VERAPAMIL [Concomitant]
     Route: 065
     Dates: start: 20040101
  10. FORMOTEROL FUMARATE [Concomitant]
     Indication: CHRONIC OBSTRUCTIVE PULMONARY DISEASE
     Route: 065
     Dates: start: 20040101

REACTIONS (5)
  - PARAESTHESIA [None]
  - BURNING SENSATION [None]
  - DUPUYTREN'S CONTRACTURE [None]
  - ALLERGIC GRANULOMATOUS ANGIITIS [None]
  - VASCULITIS [None]
